FAERS Safety Report 8758499 (Version 3)
Quarter: 2012Q4

REPORT INFORMATION
  Report Type: 
  Country: GB (occurrence: GB)
  Receive Date: 20120829
  Receipt Date: 20121217
  Transmission Date: 20130627
  Serious: Yes (Other)
  Sender: FDA-Public Use
  Company Number: PHFR2012GB004689

PATIENT
  Age: 48 Year
  Sex: Female

DRUGS (6)
  1. CLOZARIL [Suspect]
     Indication: SCHIZOPHRENIA
     Route: 048
     Dates: start: 20120820
  2. OLANZAPINE [Suspect]
     Dosage: 17.5 mg daily
     Route: 048
     Dates: end: 201106
  3. QUETIAPINE [Suspect]
     Indication: PSYCHOTIC DISORDER
     Dosage: 300 mg daily
     Route: 048
     Dates: start: 201108, end: 201112
  4. RISPERIDONE [Suspect]
     Indication: PSYCHOTIC DISORDER
     Dosage: UNK UKN, UNK
     Route: 048
     Dates: start: 201201, end: 201207
  5. MOVICOL [Concomitant]
     Indication: CONSTIPATION
     Dosage: 1 satched BID
     Route: 048
  6. SOLIFENACIN [Concomitant]
     Indication: URGE INCONTINENCE
     Dosage: 5 mg, ONCE/SINGLE
     Route: 048

REACTIONS (9)
  - Multiple sclerosis [Unknown]
  - Demyelination [Unknown]
  - Fall [Unknown]
  - Posture abnormal [Recovering/Resolving]
  - Gait disturbance [Recovering/Resolving]
  - Paraesthesia [Recovering/Resolving]
  - Asthenia [Recovering/Resolving]
  - Muscle rigidity [Recovering/Resolving]
  - Somnolence [Recovering/Resolving]
